FAERS Safety Report 22621681 (Version 1)
Quarter: 2023Q2

REPORT INFORMATION
  Report Type: Spontaneous
  Country: US (occurrence: None)
  Receive Date: 20230619
  Receipt Date: 20230619
  Transmission Date: 20230722
  Serious: No
  Sender: FDA-Public Use
  Company Number: None

PATIENT
  Age: 62 Year
  Sex: Female
  Weight: 63 kg

DRUGS (1)
  1. CEFEPIME [Suspect]
     Active Substance: CEFEPIME HYDROCHLORIDE
     Indication: Osteomyelitis
     Dosage: FREQUENCY : 3 TIMES A DAY;?
     Route: 042
     Dates: start: 20230427, end: 20230607

REACTIONS (6)
  - Ageusia [None]
  - Dysgeusia [None]
  - SARS-CoV-2 test negative [None]
  - Infection [None]
  - COVID-19 [None]
  - Symptom recurrence [None]

NARRATIVE: CASE EVENT DATE: 20230531
